FAERS Safety Report 20042893 (Version 1)
Quarter: 2021Q4

REPORT INFORMATION
  Report Type: Spontaneous
  Country: US (occurrence: US)
  Receive Date: 20211108
  Receipt Date: 20211108
  Transmission Date: 20220303
  Serious: No
  Sender: FDA-Public Use
  Company Number: US-TEVA-2021-US-1971649

PATIENT
  Age: 42 Year
  Sex: Male

DRUGS (1)
  1. NORTRIPTYLINE HYDROCHLORIDE [Suspect]
     Active Substance: NORTRIPTYLINE HYDROCHLORIDE
     Indication: Anxiety
     Dosage: I HAVE BEEN CONSUMING THESE 2 STRENGTHS SINCE LAST 2 YEARS/1- 75MG + 1 - 10MG CAPSULE EACH DAY
     Route: 065

REACTIONS (4)
  - Drug ineffective [Unknown]
  - Thinking abnormal [Unknown]
  - Feeling abnormal [Unknown]
  - Wrong technique in product usage process [Unknown]

NARRATIVE: CASE EVENT DATE: 20210101
